FAERS Safety Report 6212607-X (Version None)
Quarter: 2009Q2

REPORT INFORMATION
  Report Type: 
  Country: None (occurrence: None)
  Receive Date: 20090603
  Receipt Date: 20080522
  Transmission Date: 20091009
  Serious: Yes (Other)
  Sender: FDA-Public Use
  Company Number: US-ASTRAZENECA-2008UW06528

PATIENT
  Age: 5030 Day
  Sex: Female
  Weight: 51.7 kg

DRUGS (19)
  1. SEROQUEL [Suspect]
     Indication: DEPRESSION
     Route: 048
     Dates: start: 20050413, end: 20070321
  2. SEROQUEL [Suspect]
     Indication: BIPOLAR DISORDER
     Route: 048
     Dates: start: 20050413, end: 20070321
  3. SEROQUEL [Suspect]
     Indication: PSYCHOTIC DISORDER
     Route: 048
     Dates: start: 20050413, end: 20070321
  4. SEROQUEL [Suspect]
     Indication: HALLUCINATION
     Route: 048
     Dates: start: 20050413, end: 20070321
  5. SEROQUEL [Suspect]
     Dosage: 25-100 MG
     Route: 048
     Dates: start: 20051128
  6. SEROQUEL [Suspect]
     Dosage: 25-100 MG
     Route: 048
     Dates: start: 20051128
  7. SEROQUEL [Suspect]
     Dosage: 25-100 MG
     Route: 048
     Dates: start: 20051128
  8. SEROQUEL [Suspect]
     Dosage: 25-100 MG
     Route: 048
     Dates: start: 20051128
  9. TRAZODONE HCL [Concomitant]
     Indication: DEPRESSION
     Dosage: 25 MG, 75 MG, 100MG
     Route: 048
     Dates: start: 20051128
  10. TRAZODONE HCL [Concomitant]
     Indication: INSOMNIA
     Dosage: 25 MG, 75 MG, 100MG
     Route: 048
     Dates: start: 20051128
  11. LEXAPRO [Concomitant]
     Dates: start: 20051204, end: 20070210
  12. BENADRYL [Concomitant]
     Indication: SLEEP DISORDER
     Dosage: 25 MG,50 MG FLUCTUATING
     Dates: start: 20051205
  13. COGENTINE [Concomitant]
     Indication: EXTRAPYRAMIDAL DISORDER
     Route: 048
     Dates: start: 20051201
  14. COLACE [Concomitant]
     Indication: CONSTIPATION
     Dates: start: 20051203
  15. TYLENOL (CAPLET) [Concomitant]
     Dosage: 450-650 MG
     Dates: start: 20051128
  16. PROZAC [Concomitant]
     Dates: start: 20070208
  17. HALDOL [Concomitant]
     Indication: PSYCHOTIC DISORDER
     Route: 048
     Dates: start: 20051129
  18. HALDOL [Concomitant]
     Indication: HALLUCINATION
     Route: 048
     Dates: start: 20051129
  19. PAXIL [Concomitant]
     Indication: DEPRESSION
     Dates: start: 20051201

REACTIONS (6)
  - ABNORMAL WEIGHT GAIN [None]
  - CATATONIA [None]
  - DIABETES MELLITUS [None]
  - METABOLIC SYNDROME [None]
  - REGRESSIVE BEHAVIOUR [None]
  - TYPE 2 DIABETES MELLITUS [None]
